FAERS Safety Report 4554773-8 (Version None)
Quarter: 2005Q1

REPORT INFORMATION
  Report Type: 
  Country: None (occurrence: None)
  Receive Date: 20050118
  Receipt Date: 20050105
  Transmission Date: 20050727
  Serious: Yes (Hospitalization)
  Sender: FDA-Public Use
  Company Number: FR-GLAXOSMITHKLINE-B0363798A

PATIENT
  Age: 17 Year
  Sex: Male

DRUGS (3)
  1. LAMICTAL [Suspect]
     Indication: EPILEPSY
     Route: 048
     Dates: start: 20041001
  2. URBANYL [Concomitant]
     Indication: EPILEPSY
     Route: 048
  3. NEURONTIN [Concomitant]
     Indication: EPILEPSY
     Dosage: 300MG THREE TIMES PER DAY
     Route: 048

REACTIONS (10)
  - BALANCE DISORDER [None]
  - CONFUSIONAL STATE [None]
  - CONVULSION [None]
  - DRUG INEFFECTIVE [None]
  - EXCITABILITY [None]
  - FALL [None]
  - HEADACHE [None]
  - RASH MACULAR [None]
  - SKIN HYPERTROPHY [None]
  - SLEEP DISORDER [None]
